FAERS Safety Report 15430364 (Version 1)
Quarter: 2018Q4

REPORT INFORMATION
  Report Type: Spontaneous
  Country: US (occurrence: US)
  Receive Date: 20180926
  Receipt Date: 20180926
  Transmission Date: 20190204
  Serious: No
  Sender: FDA-Public Use
  Company Number: US-ASSERTIO THERAPEUTICS, INC.-US-2018DEP001191

PATIENT

DRUGS (1)
  1. GRALISE [Suspect]
     Active Substance: GABAPENTIN
     Indication: BONE DEVELOPMENT ABNORMAL
     Dosage: 300 MG, QD
     Route: 048
     Dates: start: 20180507, end: 201805

REACTIONS (5)
  - Gait inability [Recovered/Resolved]
  - Drug titration error [Unknown]
  - Ill-defined disorder [Recovered/Resolved]
  - Nightmare [Recovered/Resolved]
  - Product use in unapproved indication [Unknown]

NARRATIVE: CASE EVENT DATE: 20180507
